FAERS Safety Report 7442377-9 (Version None)
Quarter: 2011Q2

REPORT INFORMATION
  Report Type: 
  Country: None (occurrence: None)
  Receive Date: 20110419
  Receipt Date: 20101105
  Transmission Date: 20111010
  Serious: Yes (Hospitalization)
  Sender: FDA-Public Use
  Company Number: 750518

PATIENT
  Age: 72 Year
  Sex: Male

DRUGS (4)
  1. FLUOROURACIL [Suspect]
     Indication: RECTAL CANCER
     Dosage: INTRAVENOUS (NOT OTHERWISE SPECIFIED)
     Route: 042
     Dates: start: 20100617
  2. LEUCOVORIN CALCIUM [Suspect]
     Indication: RECTAL CANCER
     Dosage: INTRAVENOUS (NOT OTHERWISE SPECIFIED)
     Route: 042
     Dates: start: 20100617
  3. OXALIPLATIN [Suspect]
     Indication: RECTAL CANCER
     Dosage: 150 MG MILLIGRAM(S), INTRAVENOUS
     Route: 042
     Dates: start: 20100617
  4. AVASTIN [Suspect]
     Indication: RECTAL CANCER
     Dosage: 350 MG MILLIGRAM(S), INTRAVENOUS
     Route: 042
     Dates: start: 20100617, end: 20100812

REACTIONS (6)
  - ANAEMIA [None]
  - HYPERTENSION [None]
  - HAEMORRHAGIC ANAEMIA [None]
  - MALAISE [None]
  - TUMOUR HAEMORRHAGE [None]
  - RECTAL HAEMORRHAGE [None]
